FAERS Safety Report 25493719 (Version 1)
Quarter: 2025Q2

REPORT INFORMATION
  Report Type: Spontaneous
  Country: US (occurrence: US)
  Receive Date: 20250630
  Receipt Date: 20250630
  Transmission Date: 20250717
  Serious: No
  Sender: SENTISS AG
  Company Number: US-SENTISSAG-2025SAGSPO-00011

PATIENT
  Age: 46 Year
  Sex: Male
  Weight: 200 kg

DRUGS (1)
  1. KETOTIFEN FUMARATE [Suspect]
     Active Substance: KETOTIFEN FUMARATE
     Indication: Eye pruritus
     Dates: start: 20250618

REACTIONS (1)
  - Drug ineffective [Unknown]

NARRATIVE: CASE EVENT DATE: 20250618
